FAERS Safety Report 5981245-6 (Version None)
Quarter: 2008Q4

REPORT INFORMATION
  Report Type: 
  Country: None (occurrence: None)
  Receive Date: 20081202
  Receipt Date: 20081202
  Transmission Date: 20090506
  Serious: Yes (Other)
  Sender: FDA-Public Use
  Company Number: None

PATIENT
  Age: 69 Year
  Sex: Female
  Weight: 62 kg

DRUGS (17)
  1. TRANEXAMIC ACID ACID PFIZER [Suspect]
     Indication: SURGERY
     Dosage: 30MG/KG IV X1DOSE IV BOLUS
     Route: 040
     Dates: start: 20081010, end: 20081010
  2. TRANEXAMIC ACID PFIZER [Suspect]
     Dosage: 16MG/KG/HR X 3 HOURS IV DRIP
     Route: 041
  3. SEVOFLURANE [Concomitant]
  4. PROPOFOL [Concomitant]
  5. ROCURONIUM BROMIDE [Concomitant]
  6. FENTANYL-100 [Concomitant]
  7. DEXMEDETOMIDINE [Concomitant]
  8. CEFAZOLIN [Concomitant]
  9. LIDOCAINE [Concomitant]
  10. LOPRESSOR [Concomitant]
  11. CACHLORIDE [Concomitant]
  12. MAGNESIUM SULFATE [Concomitant]
  13. NEOSTIGMINE [Concomitant]
  14. HEPARIN [Concomitant]
  15. PROTAMINE SULFATE [Concomitant]
  16. METHYLPRED [Concomitant]
  17. INSULIN [Concomitant]

REACTIONS (1)
  - MYOCLONIC EPILEPSY [None]
